FAERS Safety Report 14560849 (Version 1)
Quarter: 2018Q1

REPORT INFORMATION
  Report Type: Report from Study
  Country: None (occurrence: GB)
  Receive Date: 20180222
  Receipt Date: 20180222
  Transmission Date: 20180509
  Serious: Yes (Other)
  Sender: FDA-Public Use
  Company Number: GB-ABBVIE-18K-167-2263431-00

PATIENT

DRUGS (1)
  1. HUMIRA [Suspect]
     Active Substance: ADALIMUMAB
     Indication: PRODUCT USED FOR UNKNOWN INDICATION
     Route: 058

REACTIONS (17)
  - Neoplasm malignant [Unknown]
  - Lethargy [Unknown]
  - Urinary tract infection [Unknown]
  - Infection [Unknown]
  - Fatigue [Unknown]
  - Malaise [Unknown]
  - Dysaesthesia [Unknown]
  - Paraesthesia [Unknown]
  - Skin reaction [Unknown]
  - Adverse reaction [Unknown]
  - Headache [Unknown]
  - Vomiting [Unknown]
  - Systemic lupus erythematosus [Unknown]
  - Nausea [Unknown]
  - Lower respiratory tract infection [Unknown]
  - Upper respiratory tract infection [Unknown]
  - Gastroenteritis [Unknown]
